FAERS Safety Report 25925226 (Version 1)
Quarter: 2025Q4

REPORT INFORMATION
  Report Type: Spontaneous
  Country: CH (occurrence: CH)
  Receive Date: 20251015
  Receipt Date: 20251015
  Transmission Date: 20260117
  Serious: Yes (Hospitalization)
  Sender: CELLTRION
  Company Number: None

PATIENT

DRUGS (5)
  1. INFLECTRA [Suspect]
     Active Substance: INFLIXIMAB-DYYB
     Indication: Colitis ulcerative
     Dosage: 600 MG, SINGLE
     Dates: start: 20250710, end: 20250710
  2. CHOLECALCIFEROL [Concomitant]
     Active Substance: CHOLECALCIFEROL
  3. IMUREK [AZATHIOPRINE SODIUM] [Concomitant]
  4. PURINETHOL [Concomitant]
     Active Substance: MERCAPTOPURINE
  5. CYMBALTA [Concomitant]
     Active Substance: DULOXETINE HYDROCHLORIDE

REACTIONS (3)
  - Hypersensitivity [Recovered/Resolved]
  - Oral dysaesthesia [Recovered/Resolved]
  - Erythema [Recovered/Resolved]

NARRATIVE: CASE EVENT DATE: 20250710
